FAERS Safety Report 8454667-1 (Version None)
Quarter: 2012Q2

REPORT INFORMATION
  Report Type: 
  Country: None (occurrence: None)
  Receive Date: 20120615
  Receipt Date: 20120615
  Transmission Date: 20120825
  Serious: Yes (Other)
  Sender: FDA-Public Use
  Company Number: None

PATIENT
  Sex: Male
  Weight: 72.5755 kg

DRUGS (2)
  1. PROPECIA [Suspect]
     Dosage: 1MG 1 PER DAY PO
     Route: 048
     Dates: start: 20070201, end: 20070701
  2. FINASTERIDE [Suspect]
     Dosage: 1.25MG 1 PER DAY PO
     Route: 048
     Dates: start: 20070701, end: 20120610

REACTIONS (4)
  - FATIGUE [None]
  - HYPERSOMNIA [None]
  - ERECTILE DYSFUNCTION [None]
  - LOSS OF LIBIDO [None]
